FAERS Safety Report 11182248 (Version 1)
Quarter: 2015Q2

REPORT INFORMATION
  Report Type: Spontaneous
  Country: US (occurrence: US)
  Receive Date: 20150611
  Receipt Date: 20150611
  Transmission Date: 20150821
  Serious: No
  Sender: FDA-Public Use
  Company Number: US-ASTELLAS-2015US010067

PATIENT
  Age: 64 Year
  Sex: Male

DRUGS (1)
  1. XTANDI [Suspect]
     Active Substance: ENZALUTAMIDE
     Indication: PROSTATE CANCER
     Dosage: UNK UNK, UNKNOWN FREQ.
     Route: 065

REACTIONS (11)
  - Nausea [Unknown]
  - Depression [Unknown]
  - Asthenia [Unknown]
  - Back pain [Unknown]
  - Headache [Unknown]
  - Weight decreased [Unknown]
  - Dizziness [Unknown]
  - Infection [Unknown]
  - Depressed mood [Unknown]
  - Abdominal discomfort [Unknown]
  - Drug ineffective [Unknown]
